FAERS Safety Report 4506225-9 (Version None)
Quarter: 2004Q4

REPORT INFORMATION
  Report Type: 
  Country: None (occurrence: None)
  Receive Date: 20041025
  Receipt Date: 20040309
  Transmission Date: 20050328
  Serious: Yes (Other)
  Sender: FDA-Public Use
  Company Number: US-JNJFOC-20031001923

PATIENT
  Age: 58 Year
  Sex: Female
  Weight: 123.3784 kg

DRUGS (9)
  1. REMICADE [Suspect]
     Indication: DRUG USE FOR UNKNOWN INDICATION
     Dosage: , 1 IN 1 DAY, INTRAVENOUS
     Route: 042
  2. MOBIC [Concomitant]
  3. PLAQUENIL [Concomitant]
  4. PREDNISONE [Concomitant]
  5. PRILOSEC [Concomitant]
  6. LASIX [Concomitant]
  7. RESTORIL [Concomitant]
  8. NORVASC [Concomitant]
  9. METHOTREXATE [Concomitant]

REACTIONS (6)
  - FATIGUE [None]
  - MALAISE [None]
  - MYALGIA [None]
  - PAIN [None]
  - PYREXIA [None]
  - SEPSIS [None]
